FAERS Safety Report 10275380 (Version 1)
Quarter: 2014Q2

REPORT INFORMATION
  Report Type: Spontaneous
  Country: US (occurrence: None)
  Receive Date: 20140630
  Receipt Date: 20140630
  Transmission Date: 20141212
  Serious: Yes (Death)
  Sender: FDA-Public Use
  Company Number: None

PATIENT
  Age: 56 Year
  Sex: Male

DRUGS (1)
  1. TASIGNA 150MG NOVARTIS [Suspect]
     Indication: CHRONIC MYELOID LEUKAEMIA
     Dosage: 1 CAPSULE, BID, ORAL
     Route: 048
     Dates: start: 20130502, end: 20140407

REACTIONS (1)
  - Death [None]
